FAERS Safety Report 4976021-7 (Version None)
Quarter: 2006Q2

REPORT INFORMATION
  Report Type: 
  Country: None (occurrence: None)
  Receive Date: 20060418
  Receipt Date: 20050324
  Transmission Date: 20061013
  Serious: Yes (Death, Hospitalization)
  Sender: FDA-Public Use
  Company Number: US-MERCK-0503USA04598

PATIENT
  Age: 75 Year
  Sex: Male

DRUGS (9)
  1. VIOXX [Suspect]
     Indication: ARTHRITIS
     Route: 048
     Dates: start: 20010101, end: 20021216
  2. VIOXX [Suspect]
     Indication: PAIN
     Route: 048
     Dates: start: 20010101, end: 20021216
  3. PRAVACHOL [Concomitant]
     Route: 048
  4. ARICEPT [Concomitant]
     Route: 048
  5. DIGOXIN [Concomitant]
     Route: 048
  6. SPIRONOLACTONE [Concomitant]
     Route: 048
  7. ZESTRIL [Concomitant]
     Route: 048
  8. COUMADIN [Concomitant]
     Route: 048
  9. IMDUR [Concomitant]
     Route: 048

REACTIONS (5)
  - ACUTE RESPIRATORY FAILURE [None]
  - CAROTID ARTERY STENOSIS [None]
  - CEREBRAL ARTERY OCCLUSION [None]
  - EMBOLISM [None]
  - PNEUMONIA [None]
